FAERS Safety Report 8379819-0 (Version None)
Quarter: 2012Q2

REPORT INFORMATION
  Report Type: 
  Country: None (occurrence: None)
  Receive Date: 20120523
  Receipt Date: 20120511
  Transmission Date: 20120825
  Serious: Yes (Other)
  Sender: FDA-Public Use
  Company Number: BR-SANOFI-AVENTIS-2012SA033974

PATIENT
  Age: 57 Year
  Sex: Female
  Weight: 65 kg

DRUGS (5)
  1. ZOLPIDEM TARTRATE [Suspect]
     Indication: ANXIETY
     Route: 048
     Dates: start: 20120413
  2. TYLENOL [Concomitant]
     Indication: PAIN
  3. ATENOLOL [Concomitant]
  4. ZOLPIDEM TARTRATE [Suspect]
     Indication: SLEEP DISORDER
     Route: 048
     Dates: start: 20120413
  5. ASPIRIN [Concomitant]

REACTIONS (9)
  - EAR PAIN [None]
  - DECREASED APPETITE [None]
  - DYSENTERY [None]
  - HEADACHE [None]
  - PAIN [None]
  - DIARRHOEA [None]
  - EYE PAIN [None]
  - PYREXIA [None]
  - MUSCULOSKELETAL DISCOMFORT [None]
